FAERS Safety Report 9526366 (Version 1)
Quarter: 2013Q3

REPORT INFORMATION
  Report Type: Spontaneous
  Country: CN (occurrence: CN)
  Receive Date: 20130916
  Receipt Date: 20130916
  Transmission Date: 20140515
  Serious: Yes (Other)
  Sender: FDA-Public Use
  Company Number: ALCN2013CN004571

PATIENT
  Sex: 0

DRUGS (1)
  1. TOBRAMYCIN/DEXAMETHASONE SUSP [Suspect]
     Indication: POSTOPERATIVE CARE
     Dosage: UNK GTT, QID
     Route: 047

REACTIONS (2)
  - Corneal infiltrates [Recovered/Resolved]
  - Visual acuity reduced [Recovered/Resolved]
